FAERS Safety Report 12888536 (Version 10)
Quarter: 2018Q1

REPORT INFORMATION
  Report Type: Spontaneous
  Country: US (occurrence: US)
  Receive Date: 20161027
  Receipt Date: 20180212
  Transmission Date: 20180508
  Serious: Yes (Hospitalization, Other)
  Sender: FDA-Public Use
  Company Number: US-PFIZER INC-2016501203

PATIENT
  Age: 67 Year
  Sex: Female

DRUGS (9)
  1. MARCAINE [Suspect]
     Active Substance: BUPIVACAINE HYDROCHLORIDE
     Indication: ARTHRITIS
     Dosage: 0.25%
     Route: 014
     Dates: start: 20161017, end: 20161017
  2. LIDOCAINE HCL [Suspect]
     Active Substance: LIDOCAINE HYDROCHLORIDE
     Indication: ARTHRITIS
     Dosage: STRENGTH 1% 10 MG
     Route: 014
     Dates: start: 20161017, end: 20161017
  3. LIDOCAINE HCL [Suspect]
     Active Substance: LIDOCAINE HYDROCHLORIDE
     Indication: LIGAMENT SPRAIN
     Dosage: UNK
     Route: 014
     Dates: start: 20161017, end: 20161017
  4. MARCAINE [Suspect]
     Active Substance: BUPIVACAINE HYDROCHLORIDE
     Indication: MUSCULOSKELETAL PAIN
     Dosage: 0.25%
     Route: 014
     Dates: start: 20161017, end: 20161017
  5. DEPO-MEDROL [Suspect]
     Active Substance: METHYLPREDNISOLONE ACETATE
     Indication: LIGAMENT SPRAIN
  6. DEPO-MEDROL [Suspect]
     Active Substance: METHYLPREDNISOLONE ACETATE
     Indication: MUSCULOSKELETAL PAIN
     Dosage: UNK
     Route: 014
     Dates: start: 20161017, end: 20161017
  7. LIDOCAINE HCL [Suspect]
     Active Substance: LIDOCAINE HYDROCHLORIDE
     Indication: MUSCULOSKELETAL PAIN
     Dosage: UNK
     Route: 014
     Dates: start: 20161017, end: 20161017
  8. MARCAINE [Suspect]
     Active Substance: BUPIVACAINE HYDROCHLORIDE
     Indication: LIGAMENT SPRAIN
  9. DEPO-MEDROL [Suspect]
     Active Substance: METHYLPREDNISOLONE ACETATE
     Indication: ARTHRITIS
     Dosage: STRENGTH 40 MG
     Route: 014
     Dates: start: 20161017, end: 20161017

REACTIONS (2)
  - Arthritis infective [Not Recovered/Not Resolved]
  - Product use issue [Not Recovered/Not Resolved]

NARRATIVE: CASE EVENT DATE: 20161017
